FAERS Safety Report 15985350 (Version 1)
Quarter: 2019Q1

REPORT INFORMATION
  Report Type: Spontaneous
  Country: KR (occurrence: KR)
  Receive Date: 20190220
  Receipt Date: 20190220
  Transmission Date: 20190418
  Serious: Yes (Hospitalization)
  Sender: FDA-Public Use
  Company Number: KR-009507513-1902KOR006105

PATIENT
  Sex: Male

DRUGS (45)
  1. KEYTRUDA [Suspect]
     Active Substance: PEMBROLIZUMAB
     Indication: TRANSITIONAL CELL CARCINOMA
     Dosage: QUANTITY: 2. DAYS: 1. UNK.
     Dates: start: 20190131
  2. MUCOSTA [Concomitant]
     Active Substance: REBAMIPIDE
     Dosage: QUANTITY:1. DAYS: 1. UNK.
     Route: 048
     Dates: start: 20190126
  3. DEXTROSE (+) SODIUM CHLORIDE [Concomitant]
     Dosage: QUANTITY: 1. DAYS: 2. UNK.
     Dates: start: 20190125, end: 20190126
  4. DEXTROSE (+) SODIUM CHLORIDE [Concomitant]
     Dosage: QUANTITY: 2. DAYS: 2. UNK.
     Dates: start: 20190126, end: 20190127
  5. HUMULIN R [Concomitant]
     Active Substance: INSULIN HUMAN
     Dosage: QUANTITY: 1. DAYS: 3. UNK.
     Dates: start: 20190125, end: 20190127
  6. PANTOLOC [Concomitant]
     Active Substance: PANTOPRAZOLE SODIUM
     Dosage: QUANTITY:1. DAYS: 14. UNK.
     Dates: start: 20190126
  7. DILATREND [Concomitant]
     Active Substance: CARVEDILOL
     Dosage: QUANTITY:1. DAYS: 13. UNK
     Route: 048
     Dates: start: 20190126, end: 20190207
  8. ISOKET RETARD [Concomitant]
     Dosage: QUANTITY:2. DAYS: 2. UNK.
     Route: 048
     Dates: start: 20190126
  9. TARGIN [Concomitant]
     Active Substance: NALOXONE HYDROCHLORIDE\OXYCODONE HYDROCHLORIDE
     Dosage: QUANTITY:2. DAYS: 13. UNK
     Route: 048
     Dates: start: 20190126, end: 20190207
  10. FORLAX [Concomitant]
     Active Substance: POLYETHYLENE GLYCOL 4000
     Dosage: QUANTITY:1. DAYS: 10. UNK.
     Dates: start: 20190129, end: 20190207
  11. MUCOSTA [Concomitant]
     Active Substance: REBAMIPIDE
     Dosage: QUANTITY: 3. DAYS: 11. UNK.
     Route: 048
     Dates: start: 20190128, end: 20190207
  12. SODIUM CHLORIDE. [Concomitant]
     Active Substance: SODIUM CHLORIDE
     Dosage: QUANTITY: 2. DAYS: 6. 1000 ML, UNK
     Dates: start: 20190125
  13. SODIUM BICARBONATE. [Concomitant]
     Active Substance: SODIUM BICARBONATE
     Dosage: QUANTITY: 3. DAYS: 1. UNK.
     Dates: start: 20190129
  14. MORPHINE HYDROCHLORIDE [Concomitant]
     Active Substance: MORPHINE HYDROCHLORIDE
     Dosage: QUANTITY: 1. DAYS: 1. UNK.
     Dates: start: 20190125
  15. PHOSTEN [Concomitant]
     Dosage: QUANTITY: 1. DAYS: 1. UNK.
     Dates: start: 20190204
  16. TOUJEO [Concomitant]
     Active Substance: INSULIN GLARGINE
     Dosage: QUANTITY: 1. DAYS: 1. UNK.
     Dates: start: 20190129
  17. MAGO [Concomitant]
     Dosage: QUANTITY:1. DAYS: 1. UNK.
     Route: 048
     Dates: start: 20190126
  18. SMECTA [Concomitant]
     Active Substance: MONTMORILLONITE
     Dosage: QUANTITY:1. DAYS: 2. UNK.
     Dates: start: 20190207
  19. SYLCON [Concomitant]
     Active Substance: CALCIUM POLYCARBOPHIL
     Dosage: QUANTITY:3. DAYS: 11. UNK.
     Route: 048
     Dates: start: 20190128, end: 20190207
  20. TARGIN [Concomitant]
     Active Substance: NALOXONE HYDROCHLORIDE\OXYCODONE HYDROCHLORIDE
     Dosage: QUANTITY: 1. DAYS: 1. UNK.
     Route: 048
     Dates: start: 20190207
  21. SODIUM CHLORIDE. [Concomitant]
     Active Substance: SODIUM CHLORIDE
     Dosage: QUANTITY: 1. DAYS: 1. 1000 ML, UNK
     Dates: start: 20190129
  22. SODIUM CHLORIDE. [Concomitant]
     Active Substance: SODIUM CHLORIDE
     Dosage: QUANTITY: 1. DAYS: 1. 1000 ML, UNK
     Dates: start: 20190127, end: 20190201
  23. MORPHINE HYDROCHLORIDE [Concomitant]
     Active Substance: MORPHINE HYDROCHLORIDE
     Dosage: QUANTITY: 4. DAYS: 8. UNK.
     Dates: start: 20190126
  24. DUPHALAC [Concomitant]
     Active Substance: LACTULOSE
     Dosage: QUANTITY:2. DAYS: 1. UNK.
     Dates: start: 20190129
  25. DIOVAN [Concomitant]
     Active Substance: VALSARTAN
     Dosage: QUANTITY: 0.5. DAYS: 13. UNK.
     Route: 048
     Dates: start: 20190126, end: 20190207
  26. LASIX [Concomitant]
     Active Substance: FUROSEMIDE
     Dosage: QUANTITY: 1. DAYS: 1. UNK.
     Dates: start: 20190128, end: 20190207
  27. APIDRA [Concomitant]
     Active Substance: INSULIN GLULISINE
     Dosage: QUANTITY: 0.9999. DAYS: 1. UNK.
     Dates: start: 20190131
  28. BOLGRE CAPSULES [Concomitant]
     Active Substance: IRON PROTEIN SUCCINYLATE
     Dosage: QUANTITY:1. DAYS: 15. UNK.
     Route: 048
     Dates: start: 20190126, end: 20190207
  29. ISOKET RETARD [Concomitant]
     Dosage: QUANTITY:1. DAYS: 12. UNK.
     Route: 048
     Dates: start: 20190127, end: 20190207
  30. SYLCON [Concomitant]
     Active Substance: CALCIUM POLYCARBOPHIL
     Dosage: QUANTITY:1. DAYS: 1. UNK.
     Route: 048
     Dates: start: 20190126
  31. APIDRA [Concomitant]
     Active Substance: INSULIN GLULISINE
     Dosage: QUANTITY: 1. DAYS: 1. UNK.
     Dates: start: 20190129
  32. DUPHALAC [Concomitant]
     Active Substance: LACTULOSE
     Dosage: QUANTITY: 4. DAYS: 10. UNK.
     Dates: start: 20190129, end: 20190207
  33. LIPITOR [Concomitant]
     Active Substance: ATORVASTATIN CALCIUM
     Dosage: QUANTITY:1. DAYS: 13. UNK.
     Route: 048
     Dates: start: 20190126, end: 20190207
  34. MAGO [Concomitant]
     Dosage: QUANTITY: 2. DAYS: 2. UNK.
     Route: 048
     Dates: start: 20190126, end: 20190127
  35. NEXIUM [Concomitant]
     Active Substance: ESOMEPRAZOLE MAGNESIUM
     Dosage: QUANTITY: 1. DAYS: 2. UNK.
     Route: 048
     Dates: start: 20190207
  36. SOLONDO [Concomitant]
     Active Substance: PREDNISOLONE
     Dosage: QUANTITY:1. DAYS: 11. UNK.
     Route: 048
     Dates: start: 20190130, end: 20190207
  37. SODIUM BICARBONATE. [Concomitant]
     Active Substance: SODIUM BICARBONATE
     Dosage: QUANTITY: 6. DAYS: 4. UNK.
     Dates: start: 20190127, end: 20190131
  38. POTASSIUM (UNSPECIFIED) (+) SODIUM (UNSPECIFIED) [Concomitant]
     Dosage: QUANTITY: 1. DAYS: 1. UNK.
     Dates: start: 20190126, end: 20190206
  39. DESOWEN [Concomitant]
     Active Substance: DESONIDE
     Dosage: QUANTITY:1. DAYS: 1. UNK.
     Dates: start: 20190205
  40. MAGO [Concomitant]
     Dosage: QUANTITY: 3. DAYS: 11. UNK.
     Route: 048
     Dates: start: 20190128, end: 20190207
  41. MUCOSTA [Concomitant]
     Active Substance: REBAMIPIDE
     Dosage: QUANTITY:2. DAYS: 2. UNK.
     Route: 048
     Dates: start: 20190126, end: 20190127
  42. SYLCON [Concomitant]
     Active Substance: CALCIUM POLYCARBOPHIL
     Dosage: QUANTITY:2. DAYS: 2. UNK.
     Route: 048
     Dates: start: 20190126, end: 20190127
  43. TARGIN [Concomitant]
     Active Substance: NALOXONE HYDROCHLORIDE\OXYCODONE HYDROCHLORIDE
     Dosage: QUANTITY: 2. DAYS: 1. UNK.
     Route: 048
     Dates: start: 20190207
  44. MORPHINE HYDROCHLORIDE [Concomitant]
     Active Substance: MORPHINE HYDROCHLORIDE
     Dosage: QUANTITY: 2. DAYS: 2. UNK.
     Dates: start: 20190128, end: 20190206
  45. KLENZO [Concomitant]
     Dosage: QUANTITY: 1. DAYS: 1. UNK.
     Dates: start: 20190125

REACTIONS (1)
  - Adverse event [Unknown]

NARRATIVE: CASE EVENT DATE: 2019
